FAERS Safety Report 12077673 (Version 2)
Quarter: 2016Q1

REPORT INFORMATION
  Report Type: Spontaneous
  Country: US (occurrence: US)
  Receive Date: 20160215
  Receipt Date: 20160330
  Transmission Date: 20160526
  Serious: Yes (Hospitalization)
  Sender: FDA-Public Use
  Company Number: US-009507513-1602USA006471

PATIENT
  Sex: Male

DRUGS (1)
  1. JANUVIA [Suspect]
     Active Substance: SITAGLIPTIN PHOSPHATE
     Indication: DIABETES MELLITUS
     Dosage: 100 MG, UNK
     Route: 048

REACTIONS (4)
  - Lung disorder [Recovered/Resolved]
  - Cardiac disorder [Recovered/Resolved]
  - Palpitations [Recovered/Resolved]
  - Oedema peripheral [Recovered/Resolved]
